FAERS Safety Report 20124620 (Version 1)
Quarter: 2021Q4

REPORT INFORMATION
  Report Type: Other
  Country: GB (occurrence: GB)
  Receive Date: 20211129
  Receipt Date: 20211129
  Transmission Date: 20220303
  Serious: Yes (Life-Threatening, Hospitalization, Disabling, Other)
  Sender: FDA-Public Use
  Company Number: None

PATIENT

DRUGS (2)
  1. SERTRALINE [Suspect]
     Active Substance: SERTRALINE HYDROCHLORIDE
     Indication: Ill-defined disorder
     Dosage: 100 MILLIGRAM
     Route: 048
     Dates: start: 20201203, end: 20201218
  2. SERTRALINE [Suspect]
     Active Substance: SERTRALINE HYDROCHLORIDE
     Indication: Post-traumatic stress disorder

REACTIONS (9)
  - Rhabdomyolysis [Recovered/Resolved with Sequelae]
  - Hypothermia [Unknown]
  - Loss of consciousness [Unknown]
  - Haematemesis [Unknown]
  - Dehydration [Unknown]
  - Vomiting [Unknown]
  - Hypoglycaemia [Unknown]
  - Pain in extremity [Unknown]
  - Dysuria [Unknown]

NARRATIVE: CASE EVENT DATE: 20201218
